FAERS Safety Report 7402656 (Version 2)
Quarter: 2014Q1

REPORT INFORMATION
  Report Type: Spontaneous
  Country: US (occurrence: US)
  Receive Date: 20100528
  Receipt Date: 20140124
  Transmission Date: 20141002
  Serious: No
  Sender: FDA-Public Use
  Company Number: US-JNJFOC-20100506129

PATIENT
  Sex: Male
  Weight: 83.92 kg

DRUGS (2)
  1. SANDOZ FENTANYL TRANSDERMAL SYSTEM [Suspect]
     Indication: PAIN
     Route: 062
     Dates: start: 2008, end: 201003
  2. SANDOZ FENTANYL TRANSDERMAL SYSTEM [Suspect]
     Indication: PAIN
     Route: 062
     Dates: start: 201003, end: 20100514

REACTIONS (10)
  - Product quality issue [Unknown]
  - Feeling abnormal [Recovered/Resolved]
  - Drug administered at inappropriate site [Recovered/Resolved]
  - Treatment noncompliance [Recovered/Resolved]
  - Application site irritation [Recovered/Resolved]
  - Drug effect increased [Recovered/Resolved]
  - Dizziness [Recovered/Resolved]
  - Nausea [Recovered/Resolved]
  - Pain [Recovered/Resolved]
  - Drug effect decreased [Recovered/Resolved]
